FAERS Safety Report 22175384 (Version 2)
Quarter: 2023Q2

REPORT INFORMATION
  Report Type: Report from Study
  Country: CA (occurrence: None)
  Receive Date: 20230405
  Receipt Date: 20230407
  Transmission Date: 20230722
  Serious: Yes (Death, Other)
  Sender: FDA-Public Use
  Company Number: 2023A075617

PATIENT
  Age: 26954 Day
  Sex: Female

DRUGS (1)
  1. TAGRISSO [Interacting]
     Active Substance: OSIMERTINIB
     Indication: Non-small cell lung cancer metastatic
     Route: 048
     Dates: start: 20221031

REACTIONS (3)
  - Drug interaction [Unknown]
  - Myocardial infarction [Fatal]
  - Neoplasm malignant [Unknown]

NARRATIVE: CASE EVENT DATE: 20221212
